FAERS Safety Report 6473369-4 (Version None)
Quarter: 2009Q4

REPORT INFORMATION
  Report Type: 
  Country: None (occurrence: None)
  Receive Date: 20091204
  Receipt Date: 20090107
  Transmission Date: 20100525
  Serious: Yes (Hospitalization, Other)
  Sender: FDA-Public Use
  Company Number: FR-ELI_LILLY_AND_COMPANY-FR200812000128

PATIENT
  Age: 30 Year
  Sex: Male
  Weight: 58 kg

DRUGS (4)
  1. CYMBALTA [Suspect]
     Indication: NEUROPATHY PERIPHERAL
     Dosage: 60 MG, DAILY (1/D)
     Route: 048
     Dates: start: 20081028, end: 20081106
  2. LANTUS [Concomitant]
     Indication: TYPE 1 DIABETES MELLITUS
     Dosage: 30 IU, UNKNOWN
     Route: 058
  3. HUMALOG [Concomitant]
     Indication: TYPE 1 DIABETES MELLITUS
     Dosage: 6 IU, 3/D
     Route: 048
  4. RIVOTRIL [Concomitant]
     Indication: NEUROPATHY PERIPHERAL
     Dosage: 40 MG, DAILY (1/D)
     Route: 048
     Dates: start: 20081015, end: 20081027

REACTIONS (14)
  - ACTIVATED PARTIAL THROMBOPLASTIN TIME PROLONGED [None]
  - ASTHENIA [None]
  - BLOOD SODIUM INCREASED [None]
  - DECREASED APPETITE [None]
  - DRUG EFFECT DECREASED [None]
  - GENERAL PHYSICAL HEALTH DETERIORATION [None]
  - GLYCOSYLATED HAEMOGLOBIN INCREASED [None]
  - HYPERTENSION [None]
  - MICROALBUMINURIA [None]
  - NIGHT SWEATS [None]
  - PLATELET DISORDER [None]
  - PROTHROMBIN TIME SHORTENED [None]
  - TACHYCARDIA [None]
  - WEIGHT DECREASED [None]
